FAERS Safety Report 11217638 (Version 1)
Quarter: 2015Q2

REPORT INFORMATION
  Report Type: Spontaneous
  Country: FR (occurrence: FR)
  Receive Date: 20150625
  Receipt Date: 20150625
  Transmission Date: 20150821
  Serious: Yes (Death, Life-Threatening, Hospitalization, Other)
  Sender: FDA-Public Use
  Company Number: FR-BRISTOL-MYERS SQUIBB COMPANY-BMS-2015-038859

PATIENT
  Age: 66 Year
  Sex: Female

DRUGS (2)
  1. SOLUPRED                           /00016201/ [Suspect]
     Active Substance: PREDNISOLONE
     Indication: PRODUCT USED FOR UNKNOWN INDICATION
     Dosage: 60 MG, QD
     Route: 048
     Dates: start: 20150219, end: 20150416
  2. YERVOY [Suspect]
     Active Substance: IPILIMUMAB
     Indication: PRODUCT USED FOR UNKNOWN INDICATION
     Dosage: UNK
     Route: 041
     Dates: start: 20150219, end: 20150313

REACTIONS (6)
  - Pancytopenia [Fatal]
  - Histiocytosis haematophagic [Fatal]
  - Urinary tract infection [Fatal]
  - Bronchitis [Fatal]
  - Septic shock [Fatal]
  - Candida infection [Unknown]

NARRATIVE: CASE EVENT DATE: 20150415
